FAERS Safety Report 10191798 (Version 1)
Quarter: 2014Q2

REPORT INFORMATION
  Report Type: Spontaneous
  Country: CZ (occurrence: CZ)
  Receive Date: 20140523
  Receipt Date: 20140523
  Transmission Date: 20141212
  Serious: Yes (Hospitalization, Other)
  Sender: FDA-Public Use
  Company Number: -ASTRAZENECA-2014SE33463

PATIENT
  Age: 69 Year
  Sex: Female
  Weight: 109 kg

DRUGS (16)
  1. BRILIQUE [Suspect]
     Indication: CORONARY ARTERY DISEASE
     Route: 048
     Dates: start: 20140312, end: 20140325
  2. MAGNESII LACTICI [Concomitant]
     Dosage: MG, EVERY HOUR
  3. CITALEC [Concomitant]
  4. EUTHYROX [Concomitant]
  5. BETALOC ZOK 50 MG [Concomitant]
     Route: 048
  6. BETALOC ZOK 50 MG [Concomitant]
     Route: 048
  7. SORBIFER [Concomitant]
  8. MONO MACK DEPOT [Concomitant]
  9. FURORESE [Concomitant]
  10. VEROSPIRON [Concomitant]
  11. KALIUM CHLORATUM [Concomitant]
  12. FRAXIPARIN [Concomitant]
  13. NOLPAZA [Concomitant]
  14. ACTRAPID [Concomitant]
     Dosage: MG
  15. WARFARIN [Concomitant]
  16. LANTUS [Concomitant]

REACTIONS (2)
  - Discomfort [Unknown]
  - Dyspnoea at rest [Recovered/Resolved]
